FAERS Safety Report 8533550-7 (Version None)
Quarter: 2012Q2

REPORT INFORMATION
  Report Type: 
  Country: None (occurrence: None)
  Receive Date: 20120412
  Receipt Date: 20100809
  Transmission Date: 20120825
  Serious: Yes (Other)
  Sender: FDA-Public Use
  Company Number: PHHY2010US45925

PATIENT
  Sex: Male

DRUGS (1)
  1. CLOZARIL [Suspect]
     Indication: PSYCHOTIC DISORDER
     Dosage: ORAL
     Route: 048

REACTIONS (2)
  - THROMBOCYTOPENIA [None]
  - PLATELET COUNT DECREASED [None]
